FAERS Safety Report 6385899-4 (Version None)
Quarter: 2009Q4

REPORT INFORMATION
  Report Type: 
  Country: None (occurrence: None)
  Receive Date: 20091002
  Receipt Date: 20090217
  Transmission Date: 20100525
  Serious: No
  Sender: FDA-Public Use
  Company Number: US-ASTRAZENECA-2009UW04537

PATIENT
  Age: 64 Year
  Sex: Female
  Weight: 74.8 kg

DRUGS (4)
  1. ARIMIDEX [Suspect]
     Indication: BREAST CANCER
     Route: 048
     Dates: start: 20070801
  2. TAXOZIL [Concomitant]
     Indication: HYPERTENSION
  3. CALCIUM [Concomitant]
  4. ALPRAZOLAM [Concomitant]
     Indication: PANIC ATTACK

REACTIONS (10)
  - ASTHENIA [None]
  - BLOOD CHOLESTEROL INCREASED [None]
  - BLOOD PRESSURE INCREASED [None]
  - BONE PAIN [None]
  - DEPRESSED MOOD [None]
  - DRY SKIN [None]
  - FATIGUE [None]
  - HAIR TEXTURE ABNORMAL [None]
  - HEADACHE [None]
  - VULVOVAGINAL DRYNESS [None]
